FAERS Safety Report 16376760 (Version 1)
Quarter: 2019Q3

REPORT INFORMATION
  Report Type: Spontaneous
  Country: US (occurrence: US)
  Receive Date: 20190530
  Receipt Date: 20190530
  Transmission Date: 20191004
  Serious: Yes (Life-Threatening, Hospitalization, Disabling)
  Sender: FDA-Public Use
  Company Number: None

PATIENT
  Age: 30 Year
  Weight: 90 kg

DRUGS (1)
  1. CYMBALTA [Suspect]
     Active Substance: DULOXETINE HYDROCHLORIDE
     Indication: ANXIETY
     Dates: start: 20080101

REACTIONS (4)
  - Drug withdrawal syndrome [None]
  - Contraindicated product prescribed [None]
  - Psychotic disorder [None]
  - Depression [None]

NARRATIVE: CASE EVENT DATE: 20160701
